FAERS Safety Report 4545472-7 (Version None)
Quarter: 2005Q1

REPORT INFORMATION
  Report Type: 
  Country: None (occurrence: None)
  Receive Date: 20050103
  Receipt Date: 20041208
  Transmission Date: 20050727
  Serious: Yes (Other)
  Sender: FDA-Public Use
  Company Number: USA041285765

PATIENT
  Sex: Male

DRUGS (3)
  1. STRATTERA [Suspect]
     Dosage: 100 MG DAY
  2. MULTI-VITAMINS [Concomitant]
  3. ASPIRIN [Concomitant]

REACTIONS (14)
  - AORTIC STENOSIS [None]
  - BLOOD GLUCOSE DECREASED [None]
  - CONSTIPATION [None]
  - DIZZINESS [None]
  - EJACULATION DISORDER [None]
  - HEART RATE INCREASED [None]
  - HYPERHIDROSIS [None]
  - MICTURITION DISORDER [None]
  - NAUSEA [None]
  - ORTHOSTATIC HYPOTENSION [None]
  - PAIN [None]
  - PROSTATIC PAIN [None]
  - SENSATION OF PRESSURE [None]
  - TREATMENT NONCOMPLIANCE [None]
